FAERS Safety Report 8064478-7 (Version None)
Quarter: 2012Q1

REPORT INFORMATION
  Report Type: 
  Country: None (occurrence: None)
  Receive Date: 20120123
  Receipt Date: 20120120
  Transmission Date: 20120608
  Serious: No
  Sender: FDA-Public Use
  Company Number: US-BAYER-2012-006984

PATIENT
  Sex: Male

DRUGS (7)
  1. BETASERON [Suspect]
     Indication: PRODUCT USED FOR UNKNOWN INDICATION
     Dosage: 0.3 MG, UNK
     Route: 058
  2. ACETYLSALICYLIC ACID+SODIUMBICARBONATE [Concomitant]
  3. OXYCONTIN [Concomitant]
     Dosage: 10 MG CR
  4. LORTAB [Concomitant]
     Dosage: 7.5 TAB
  5. NEXIUM [Concomitant]
     Dosage: 20 MG
  6. NEBIVOLOL [Concomitant]
     Dosage: 2.5 MG TAB
  7. ACETYLSALICYLIC ACID SRT [Concomitant]
     Dosage: 81 MG  EC

REACTIONS (5)
  - RHINORRHOEA [None]
  - CHILLS [None]
  - INFLUENZA [None]
  - INJECTION SITE REACTION [None]
  - MALAISE [None]
